FAERS Safety Report 5806759-0 (Version None)
Quarter: 2008Q3

REPORT INFORMATION
  Report Type: 
  Country: None (occurrence: None)
  Receive Date: 20080709
  Receipt Date: 20080709
  Transmission Date: 20090109
  Serious: Yes (Disabling)
  Sender: FDA-Public Use
  Company Number: None

PATIENT
  Age: 42 Year
  Sex: Female

DRUGS (2)
  1. MARCAINE WITH EPINEPHRINE [Suspect]
     Indication: ARTHROSCOPY
     Dosage: 0.5% 270ML,4ML/HR 014
     Dates: start: 20030910
  2. MARCAINE WITH EPINEPHRINE [Suspect]
     Indication: TENDONITIS
     Dosage: 0.5% 270ML,4ML/HR 014
     Dates: start: 20030910

REACTIONS (2)
  - CHONDROLYSIS [None]
  - SHOULDER ARTHROPLASTY [None]
